FAERS Safety Report 14432614 (Version 2)
Quarter: 2018Q1

REPORT INFORMATION
  Report Type: Spontaneous
  Country: DE (occurrence: DE)
  Receive Date: 20180124
  Receipt Date: 20180327
  Transmission Date: 20180509
  Serious: Yes (Other)
  Sender: FDA-Public Use
  Company Number: DE-CELLTRION INC.-2018DE017484

PATIENT

DRUGS (1)
  1. INFLECTRA [Suspect]
     Active Substance: INFLIXIMAB-DYYB
     Indication: CROHN^S DISEASE
     Dosage: UNK
     Route: 042

REACTIONS (5)
  - Lymphoma [Unknown]
  - Feeling abnormal [Unknown]
  - Fatigue [Unknown]
  - Abdominal pain [Unknown]
  - Intestinal stenosis [Unknown]
